FAERS Safety Report 7773320-0 (Version None)
Quarter: 2011Q3

REPORT INFORMATION
  Report Type: 
  Country: None (occurrence: None)
  Receive Date: 20110922
  Receipt Date: 20110919
  Transmission Date: 20111222
  Serious: Yes (Death, Hospitalization)
  Sender: FDA-Public Use
  Company Number: US-CELGENEUS-163-21880-11073208

PATIENT
  Sex: Female

DRUGS (4)
  1. REVLIMID [Suspect]
     Dosage: 10 MILLIGRAM
     Route: 048
     Dates: start: 20110201
  2. REVLIMID [Suspect]
     Dosage: 15-10MG
     Route: 048
     Dates: start: 20090301, end: 20100101
  3. REVLIMID [Suspect]
     Indication: MULTIPLE MYELOMA
     Dosage: 25 MILLIGRAM
     Route: 048
     Dates: start: 20081201
  4. REVLIMID [Suspect]
     Dosage: 15 MILLIGRAM
     Route: 048
     Dates: start: 20100801, end: 20100101

REACTIONS (4)
  - HIP FRACTURE [None]
  - FALL [None]
  - RENAL FAILURE CHRONIC [None]
  - MULTIPLE MYELOMA [None]
